FAERS Safety Report 13597061 (Version 4)
Quarter: 2018Q2

REPORT INFORMATION
  Report Type: Report from Study
  Country: CN (occurrence: CN)
  Receive Date: 20170531
  Receipt Date: 20180510
  Transmission Date: 20180711
  Serious: Yes (Other)
  Sender: FDA-Public Use
  Company Number: PHHY2017CN078442

PATIENT
  Age: 44 Year
  Sex: Male

DRUGS (144)
  1. PREDNISONE. [Suspect]
     Active Substance: PREDNISONE
     Dosage: 50 MG, QD
     Route: 065
     Dates: start: 20160707, end: 20160707
  2. PREDNISONE. [Suspect]
     Active Substance: PREDNISONE
     Dosage: 30 MG, QD
     Route: 065
     Dates: start: 20160709, end: 20160709
  3. PREDNISONE. [Suspect]
     Active Substance: PREDNISONE
     Dosage: 20 MG, QD
     Route: 065
     Dates: start: 20160710, end: 20160710
  4. HUMAN ALBUMIN /20% HUMAN BLOOD ALBUMIN [Concomitant]
     Dosage: 50 ML, QD
     Route: 042
     Dates: start: 20160715, end: 20160716
  5. GLUCOSE [Concomitant]
     Active Substance: DEXTROSE
     Indication: PROPHYLAXIS
     Dosage: 500 ML(10%), QD
     Route: 042
     Dates: start: 20160713, end: 20160713
  6. ALLOPURINOL. [Concomitant]
     Active Substance: ALLOPURINOL
     Indication: BLOOD URIC ACID INCREASED
     Dosage: 100 MG, TID
     Route: 042
     Dates: start: 20160722, end: 20160726
  7. ALPROSTADIL. [Concomitant]
     Active Substance: ALPROSTADIL
     Indication: POOR PERIPHERAL CIRCULATION
     Dosage: 20 UG, QD
     Route: 042
     Dates: start: 20160704, end: 20160712
  8. ATORVASTATIN CALCIUM. [Concomitant]
     Active Substance: ATORVASTATIN CALCIUM
     Indication: LIPIDS INCREASED
     Dosage: 20 MG, QD
     Route: 048
     Dates: start: 20160707, end: 20170726
  9. CEFOPERAZONA/SULBACTAM [Concomitant]
     Active Substance: CEFOPERAZONE SODIUM\SULBACTAM SODIUM
     Indication: SKIN TEST
     Dosage: 3000 MG, BID
     Route: 042
     Dates: start: 20160711, end: 20160718
  10. CEFOPERAZONE SODIUM AND TAZOBACTAM SODIUM [Concomitant]
     Active Substance: CEFOPERAZONE\TAZOBACTAM SODIUM
     Indication: SKIN TEST
     Dosage: 5000 MG, BID
     Route: 042
     Dates: start: 20160704, end: 20160711
  11. CLOPIDOGREL [Concomitant]
     Active Substance: CLOPIDOGREL BISULFATE
     Dosage: 75 MG, QD
     Route: 048
     Dates: start: 20160708, end: 20170726
  12. DOPAMINE [Concomitant]
     Active Substance: DOPAMINE\DOPAMINE HYDROCHLORIDE
     Dosage: 5 MG, QD
     Route: 065
     Dates: start: 20160706, end: 20160706
  13. ISOSORBIDE MONONITRATE. [Concomitant]
     Active Substance: ISOSORBIDE MONONITRATE
     Dosage: 30 ML, QD
     Route: 042
     Dates: start: 20160713, end: 20160713
  14. ISOSORBIDE MONONITRATE. [Concomitant]
     Active Substance: ISOSORBIDE MONONITRATE
     Indication: ISCHAEMIC HEART DISEASE PROPHYLAXIS
     Dosage: 50 MG, BID
     Route: 048
     Dates: start: 20160714, end: 20170726
  15. NITROGLYCERIN. [Concomitant]
     Active Substance: NITROGLYCERIN
     Indication: ISCHAEMIC HEART DISEASE PROPHYLAXIS
     Dosage: 20 UNK, UNK
     Route: 042
     Dates: start: 20160704, end: 20160704
  16. OMEPRAZOL [Concomitant]
     Active Substance: OMEPRAZOLE
     Indication: GASTRITIS PROPHYLAXIS
     Dosage: 10 MG, BID
     Route: 048
     Dates: start: 20160712
  17. PHENOBARBITAL. [Concomitant]
     Active Substance: PHENOBARBITAL
     Indication: PRODUCT USED FOR UNKNOWN INDICATION
     Dosage: 100 MG, QD
     Route: 030
     Dates: start: 20160704, end: 20160704
  18. PHOSPHOCREATINE SODIUM [Concomitant]
     Active Substance: PHOSPHOCREATINE SODIUM
     Indication: ISCHAEMIC HEART DISEASE PROPHYLAXIS
     Dosage: 2000 MG, QD
     Route: 042
     Dates: start: 20160704, end: 20160706
  19. RECOMBINANT HUMAN ERYTHROPOIETIN [Concomitant]
     Active Substance: ERYTHROPOIETIN
     Dosage: 1 WU, QD
     Route: 058
     Dates: start: 20160723, end: 20160724
  20. SCOPOLAMINE [Concomitant]
     Active Substance: SCOPOLAMINE
     Indication: PRODUCT USED FOR UNKNOWN INDICATION
     Dosage: 0.3 MG, QD
     Route: 030
     Dates: start: 20160704, end: 20160704
  21. CALCIUM [Concomitant]
     Active Substance: CALCIUM
     Dosage: 30 ML, QD
     Route: 042
     Dates: start: 20160718, end: 20160718
  22. AMPHOTERICIN B. [Concomitant]
     Active Substance: AMPHOTERICIN B
     Indication: INFECTION PROPHYLAXIS
     Dosage: 30 MG, QD
     Route: 042
     Dates: start: 20160711, end: 20160718
  23. OMEPRAZOLE. [Concomitant]
     Active Substance: OMEPRAZOLE
     Indication: GASTRITIS PROPHYLAXIS
     Dosage: 10 MG, BID
     Route: 048
     Dates: start: 20160712, end: 20170726
  24. MYFORTIC [Suspect]
     Active Substance: MYCOPHENOLATE SODIUM
     Indication: IMMUNOSUPPRESSANT DRUG THERAPY
     Dosage: 1080 MG, QD
     Route: 065
     Dates: start: 20160712
  25. BASILIXIMAB [Suspect]
     Active Substance: BASILIXIMAB
     Indication: RENAL TRANSPLANT
     Dosage: 20 MG, QD
     Route: 065
     Dates: start: 20160704, end: 20160704
  26. PREDNISONE. [Suspect]
     Active Substance: PREDNISONE
     Indication: IMMUNOSUPPRESSANT DRUG THERAPY
     Dosage: 50 MG, QD
     Route: 065
     Dates: start: 20160706, end: 20160706
  27. METHYLPREDNISOLONE. [Suspect]
     Active Substance: METHYLPREDNISOLONE
     Indication: IMMUNOSUPPRESSION
     Dosage: 500 MG, QD
     Route: 065
     Dates: start: 20160704, end: 20160704
  28. SODIUM BICARBONATE. [Concomitant]
     Active Substance: SODIUM BICARBONATE
     Dosage: 125 ML, QD
     Route: 042
     Dates: start: 20160716, end: 20160716
  29. CINEPAZIDE MALEATE [Concomitant]
     Active Substance: CINEPAZIDE MALEATE
     Indication: ISCHAEMIC HEART DISEASE PROPHYLAXIS
     Dosage: 640 MG, QD
     Route: 042
     Dates: start: 20160704, end: 20160718
  30. DOPAMINE [Concomitant]
     Active Substance: DOPAMINE\DOPAMINE HYDROCHLORIDE
     Indication: POLYURIA
     Dosage: 5 MG, QD
     Route: 042
     Dates: start: 20160704, end: 20160704
  31. FOLIC ACID. [Concomitant]
     Active Substance: FOLIC ACID
     Indication: ANAEMIA
     Dosage: 5 MG, TID
     Route: 048
     Dates: start: 20160719, end: 20160726
  32. FUROSEMIDE. [Concomitant]
     Active Substance: FUROSEMIDE
     Dosage: 40 MG, QD
     Route: 042
     Dates: start: 20160708, end: 20160726
  33. HEPARIN SODIUM. [Concomitant]
     Active Substance: HEPARIN SODIUM
     Indication: PRODUCT USED FOR UNKNOWN INDICATION
     Dosage: 1.25 UNK, QD
     Route: 042
     Dates: start: 20160704, end: 20160704
  34. IRON SUCROSE [Concomitant]
     Active Substance: IRON SUCROSE
     Indication: ANAEMIA
     Dosage: 100 MG, QD
     Route: 042
     Dates: start: 20160719, end: 20160723
  35. ISOSORBIDE MONONITRATE. [Concomitant]
     Active Substance: ISOSORBIDE MONONITRATE
     Indication: PRODUCT USED FOR UNKNOWN INDICATION
     Dosage: 30 ML, QD
     Route: 042
     Dates: start: 20160708, end: 20160709
  36. ISOSORBIDE MONONITRATE. [Concomitant]
     Active Substance: ISOSORBIDE MONONITRATE
     Dosage: 30 ML, QD
     Route: 042
     Dates: start: 20160710, end: 20160711
  37. ISOSORBIDE MONONITRATE. [Concomitant]
     Active Substance: ISOSORBIDE MONONITRATE
     Dosage: 30 ML, QD
     Route: 042
     Dates: start: 20160714, end: 20160714
  38. LIDOCAINE. [Concomitant]
     Active Substance: LIDOCAINE
     Indication: POLYURIA
     Dosage: 10 ML, QD
     Route: 042
     Dates: start: 20160704, end: 20160704
  39. LINEZOLID. [Concomitant]
     Active Substance: LINEZOLID
     Indication: INFECTION PROPHYLAXIS
     Dosage: 600 MG, BID
     Route: 048
     Dates: start: 20160718, end: 20160721
  40. MAGNESIUM ISOGLYCYRRHIZINATE [Concomitant]
     Active Substance: MAGNESIUM ISOGLYCYRRHIZINATE
     Dosage: 150 MG, QD
     Route: 042
     Dates: start: 20160707, end: 20160714
  41. PHENTOLAMINE MESYLATE. [Concomitant]
     Active Substance: PHENTOLAMINE MESYLATE
     Indication: POLYURIA
     Dosage: 5 MG, QD
     Route: 042
     Dates: start: 20160704, end: 20160704
  42. POTASSIUM CHLORIDE. [Concomitant]
     Active Substance: POTASSIUM CHLORIDE
     Indication: MINERAL SUPPLEMENTATION
     Dosage: 2000 MG, TID
     Route: 048
     Dates: start: 20160709, end: 20160709
  43. POTASSIUM CHLORIDE. [Concomitant]
     Active Substance: POTASSIUM CHLORIDE
     Dosage: 2000 MG, BID
     Route: 048
     Dates: start: 20160710, end: 20160710
  44. TORASEMIDE [Concomitant]
     Active Substance: TORSEMIDE
     Indication: POLYURIA
     Dosage: 20 MG, BID
     Route: 042
     Dates: start: 20160709, end: 20160709
  45. MYFORTIC [Suspect]
     Active Substance: MYCOPHENOLATE SODIUM
     Indication: RENAL TRANSPLANT
     Dosage: 1440 MG, QD
     Route: 065
     Dates: start: 20160704, end: 20160711
  46. PREDNISONE. [Suspect]
     Active Substance: PREDNISONE
     Dosage: 10 MG, QD
     Route: 065
     Dates: start: 20160711, end: 20160714
  47. TACROLIMUS. [Suspect]
     Active Substance: TACROLIMUS
     Dosage: 5 MG, QD
     Route: 065
     Dates: start: 20160719, end: 20160722
  48. SODIUM BICARBONATE. [Concomitant]
     Active Substance: SODIUM BICARBONATE
     Indication: MINERAL SUPPLEMENTATION
     Dosage: 250 ML (10 %), QD
     Route: 042
     Dates: start: 20160704, end: 20160704
  49. HUMAN ALBUMIN /20% HUMAN BLOOD ALBUMIN [Concomitant]
     Dosage: 100 ML, QD
     Route: 042
     Dates: start: 20160718, end: 20160718
  50. GLUCOSE [Concomitant]
     Active Substance: DEXTROSE
     Dosage: 60 ML, QD
     Route: 042
     Dates: start: 20160718, end: 20160718
  51. AMPHOMYCIN/AMPHOMYCIN B LIPOSOME [Concomitant]
     Indication: PRODUCT USED FOR UNKNOWN INDICATION
     Dosage: 30 MG, QD
     Route: 042
     Dates: start: 20060704, end: 20160710
  52. AMPHOMYCIN/AMPHOMYCIN B LIPOSOME [Concomitant]
     Dosage: 30 MG, QD
     Route: 042
     Dates: start: 20160711, end: 20160718
  53. CEFOPERAZONE SODIUM AND TAZOBACTAM SODIUM [Concomitant]
     Active Substance: CEFOPERAZONE\TAZOBACTAM SODIUM
     Indication: PRODUCT USED FOR UNKNOWN INDICATION
     Dosage: 2500 MG, QD
     Route: 058
     Dates: start: 20160704, end: 20160704
  54. DIAMMONIUM GLYCYRRHIZINATE [Concomitant]
     Active Substance: HERBALS\DIAMMONIUM GLYCYRRHIZINATE
     Indication: PRODUCT USED FOR UNKNOWN INDICATION
     Dosage: 100 MG, BID
     Route: 048
     Dates: start: 20160725, end: 20160727
  55. FUROSEMIDE. [Concomitant]
     Active Substance: FUROSEMIDE
     Dosage: 60 MG, QD
     Route: 042
     Dates: start: 20160706, end: 20160706
  56. INSULIN [Concomitant]
     Active Substance: INSULIN NOS
     Indication: BLOOD POTASSIUM INCREASED
     Dosage: 16 IU, QD
     Route: 042
     Dates: start: 20160704, end: 20160704
  57. ISOSORBIDE MONONITRATE. [Concomitant]
     Active Substance: ISOSORBIDE MONONITRATE
     Dosage: 30 ML, QD
     Route: 042
     Dates: start: 20160709, end: 20160709
  58. ISOSORBIDE MONONITRATE. [Concomitant]
     Active Substance: ISOSORBIDE MONONITRATE
     Dosage: 30 ML, QD
     Route: 042
     Dates: start: 20160711, end: 20160711
  59. LANSOPRAZOLE. [Concomitant]
     Active Substance: LANSOPRAZOLE
     Dosage: 69 MG, QD
     Route: 042
     Dates: start: 20060111, end: 20160712
  60. HEPARIN SODIUM/LOW MOLECULE HEPARIN SODIUM [Concomitant]
     Dosage: 40 MG, QD
     Route: 042
     Dates: start: 20160708, end: 20160708
  61. HEPARIN SODIUM/LOW MOLECULE HEPARIN SODIUM [Concomitant]
     Dosage: 40 MG, BID
     Route: 058
     Dates: start: 20160709, end: 20160717
  62. PHENTOLAMINE MESYLATE. [Concomitant]
     Active Substance: PHENTOLAMINE MESYLATE
     Dosage: 5 MG, QD
     Route: 042
     Dates: start: 20160706, end: 20160706
  63. POTASSIUM CHLORIDE. [Concomitant]
     Active Substance: POTASSIUM CHLORIDE
     Dosage: 2000 MG, BID
     Route: 048
     Dates: start: 20160713, end: 20160713
  64. RECOMBINANT HUMAN ERYTHROPOIETIN [Concomitant]
     Active Substance: ERYTHROPOIETIN
     Dosage: 1 WU, QD
     Route: 042
     Dates: start: 20160721, end: 20160721
  65. TORASEMIDE [Concomitant]
     Active Substance: TORSEMIDE
     Dosage: 40 MG, QD
     Route: 042
     Dates: start: 20160718, end: 20160718
  66. POTASSIUM/10 % POTASSIUM [Concomitant]
     Dosage: 20 ML, QD
     Route: 048
     Dates: start: 20160709, end: 20160709
  67. AMBROXOL HYDROCHLORIDE [Concomitant]
     Active Substance: AMBROXOL HYDROCHLORIDE
     Indication: PRODUCT USED FOR UNKNOWN INDICATION
     Dosage: 210 MG, QD
     Route: 042
     Dates: start: 20160704, end: 20160712
  68. CEFOPERAZONA/SULBACTAM [Concomitant]
     Active Substance: CEFOPERAZONE SODIUM\SULBACTAM SODIUM
     Indication: INFECTION PROPHYLAXIS
     Dosage: 1500 MG, QD
     Route: 058
     Dates: start: 20160711, end: 20160711
  69. INDAPAMIDE. [Concomitant]
     Active Substance: INDAPAMIDE
     Indication: HYPERTENSION
     Dosage: 1.5 MG, QD
     Route: 042
     Dates: start: 20160724, end: 20160726
  70. MICAFUNGIN SODIUM [Concomitant]
     Active Substance: MICAFUNGIN SODIUM
     Dosage: 50 MG, QD
     Route: 065
     Dates: start: 20160725, end: 20160725
  71. POTASSIUM CHLORIDE. [Concomitant]
     Active Substance: POTASSIUM CHLORIDE
     Dosage: 15 ML, QD
     Route: 042
     Dates: start: 20160713, end: 20160713
  72. RECOMBINANT HUMAN ERYTHROPOIETIN [Concomitant]
     Active Substance: ERYTHROPOIETIN
     Dosage: 1 WU, QD
     Route: 058
     Dates: start: 20160719, end: 20160719
  73. CALCIUM [Concomitant]
     Active Substance: CALCIUM
     Dosage: 20 ML, QD
     Route: 042
     Dates: start: 20160718, end: 20160718
  74. BASILIXIMAB [Suspect]
     Active Substance: BASILIXIMAB
     Indication: IMMUNOSUPPRESSANT DRUG THERAPY
  75. HUMAN ALBUMIN /20% HUMAN BLOOD ALBUMIN [Concomitant]
     Indication: SUPPLEMENTATION THERAPY
     Dosage: 100 ML, QD
     Route: 042
     Dates: start: 20160704, end: 20160704
  76. HUMAN ALBUMIN /20% HUMAN BLOOD ALBUMIN [Concomitant]
     Dosage: 100 ML, BID
     Route: 042
     Dates: start: 20160704, end: 20160711
  77. HUMAN ALBUMIN /20% HUMAN BLOOD ALBUMIN [Concomitant]
     Dosage: 100 ML, QD
     Route: 042
     Dates: start: 20160712, end: 20160714
  78. HUMAN ALBUMIN /20% HUMAN BLOOD ALBUMIN [Concomitant]
     Dosage: 100 ML, QD
     Route: 042
     Dates: start: 20160719, end: 20160719
  79. HUMAN ALBUMIN /20% HUMAN BLOOD ALBUMIN [Concomitant]
     Dosage: 100 ML, QD
     Route: 042
     Dates: start: 20160722, end: 20160723
  80. GLUCOSE [Concomitant]
     Active Substance: DEXTROSE
     Dosage: 40 ML, (50%) QD
     Route: 042
     Dates: start: 20160713, end: 20160713
  81. ASPIRIN. [Concomitant]
     Active Substance: ASPIRIN
     Indication: PROPHYLAXIS
     Dosage: 100 UNK, UNK
     Route: 048
     Dates: start: 20060707, end: 20160708
  82. CLOPIDOGREL [Concomitant]
     Active Substance: CLOPIDOGREL BISULFATE
     Indication: ISCHAEMIC HEART DISEASE PROPHYLAXIS
     Dosage: 75 MG, BID
     Route: 048
     Dates: start: 20160707, end: 20160708
  83. DEZOCINE [Concomitant]
     Active Substance: DEZOCINE
     Indication: ANALGESIC THERAPY
     Dosage: 30 MG, QD
     Route: 042
     Dates: start: 20160704, end: 20160704
  84. INSULIN [Concomitant]
     Active Substance: INSULIN NOS
     Dosage: 14 IU, QD
     Route: 042
     Dates: start: 20160718, end: 20160718
  85. METOPROLOL. [Concomitant]
     Active Substance: METOPROLOL
     Indication: HYPERTENSION
     Dosage: 47.5 MG, BID
     Route: 048
     Dates: start: 20160707, end: 20170726
  86. MICAFUNGIN SODIUM [Concomitant]
     Active Substance: MICAFUNGIN SODIUM
     Indication: INFECTION PROPHYLAXIS
     Dosage: 100 MG, QD
     Route: 042
     Dates: start: 20160718, end: 20160721
  87. TRIMETAZIDIN [Concomitant]
     Indication: ISCHAEMIC HEART DISEASE PROPHYLAXIS
     Dosage: 35 MG, QD
     Route: 048
     Dates: start: 20160707
  88. CALCIUM GLUCONATE. [Concomitant]
     Active Substance: CALCIUM GLUCONATE
     Indication: PRODUCT USED FOR UNKNOWN INDICATION
     Dosage: 50 ML, QD (20 ML AND 30 ML)
     Route: 042
     Dates: start: 20160718, end: 20160718
  89. PREDNISONE. [Suspect]
     Active Substance: PREDNISONE
     Dosage: 40 MG, QD
     Route: 065
     Dates: start: 20160708, end: 20160708
  90. TACROLIMUS. [Suspect]
     Active Substance: TACROLIMUS
     Dosage: 6 MG, QD
     Route: 065
     Dates: start: 20160723
  91. SODIUM BICARBONATE. [Concomitant]
     Active Substance: SODIUM BICARBONATE
     Dosage: 250 ML, QD
     Route: 042
     Dates: start: 20160718, end: 20160718
  92. ASPIRIN. [Concomitant]
     Active Substance: ASPIRIN
     Dosage: 100 MG, QD
     Route: 048
     Dates: start: 20160708, end: 20170726
  93. INSULIN [Concomitant]
     Active Substance: INSULIN NOS
     Dosage: 16 IU, QD
     Route: 042
     Dates: start: 20160713, end: 20160713
  94. ISOSORBIDE MONONITRATE. [Concomitant]
     Active Substance: ISOSORBIDE MONONITRATE
     Dosage: 30 ML, QD
     Route: 042
     Dates: start: 20160711, end: 20160712
  95. ISOSORBIDE MONONITRATE. [Concomitant]
     Active Substance: ISOSORBIDE MONONITRATE
     Dosage: 30 ML, QD
     Route: 042
     Dates: start: 20160714, end: 20160715
  96. LANSOPRAZOLE. [Concomitant]
     Active Substance: LANSOPRAZOLE
     Indication: GASTRITIS PROPHYLAXIS
     Dosage: 60 MG, BID
     Route: 042
     Dates: start: 20160704, end: 20160710
  97. LEVAMLODIPINE BESILATE [Concomitant]
     Active Substance: LEVAMLODIPINE BESYLATE
     Dosage: 5 MG, QD
     Route: 042
     Dates: start: 20160708, end: 20160726
  98. HEPARIN SODIUM/LOW MOLECULE HEPARIN SODIUM [Concomitant]
     Indication: THROMBOSIS PROPHYLAXIS
     Dosage: 40 MG, QD
     Route: 058
     Dates: start: 20160707, end: 20160707
  99. MAGNESIUM ISOGLYCYRRHIZINATE [Concomitant]
     Active Substance: MAGNESIUM ISOGLYCYRRHIZINATE
     Indication: PRODUCT USED FOR UNKNOWN INDICATION
     Dosage: 150 MG, QD
     Route: 042
     Dates: start: 20160704, end: 20160706
  100. MUCOPOLYSACCHARIDE POLYSULFURIC ACID ESTER [Concomitant]
     Indication: SKIN DISORDER
     Dosage: 14000 MG, QD
     Route: 065
     Dates: start: 20160716, end: 20160716
  101. RECOMBINANT HUMAN ERYTHROPOIETIN [Concomitant]
     Active Substance: ERYTHROPOIETIN
     Indication: PRODUCT USED FOR UNKNOWN INDICATION
     Dosage: 1 WU, QD
     Route: 058
     Dates: start: 20160713, end: 20160713
  102. RIBOFLAVIN SODIUM PHOSPHATE [Concomitant]
     Dosage: 20 MG, QD
     Route: 042
     Dates: start: 20160707, end: 20160714
  103. SODIUM PHOSPHATE [Concomitant]
     Active Substance: SODIUM PHOSPHATE
     Indication: INTESTINAL OBSTRUCTION
     Dosage: 130 ML, QD
     Route: 042
     Dates: start: 20160707, end: 20160707
  104. TIGECYCLINE. [Concomitant]
     Active Substance: TIGECYCLINE
     Indication: INFECTION PROPHYLAXIS
     Dosage: 100 MG, QD
     Route: 042
     Dates: start: 20160704, end: 20160704
  105. TIGECYCLINE. [Concomitant]
     Active Substance: TIGECYCLINE
     Dosage: 50 MG, BID
     Route: 042
     Dates: start: 20160705, end: 20160718
  106. TORASEMIDE [Concomitant]
     Active Substance: TORSEMIDE
     Dosage: 20 MG, QD
     Route: 042
     Dates: start: 20160713, end: 20160713
  107. TORASEMIDE [Concomitant]
     Active Substance: TORSEMIDE
     Dosage: 20 MG, QD
     Route: 042
     Dates: start: 20160714, end: 20160714
  108. TORASEMIDE [Concomitant]
     Active Substance: TORSEMIDE
     Dosage: 20 MG, QD
     Route: 042
     Dates: start: 20160719, end: 20160720
  109. CALCIUM [Concomitant]
     Active Substance: CALCIUM
     Dosage: 20 ML, QD
     Route: 042
     Dates: start: 20160719, end: 20160719
  110. MAGNESIUM SULFATE. [Concomitant]
     Active Substance: MAGNESIUM SULFATE
     Indication: PROPHYLAXIS
     Dosage: 20 ML, QD
     Route: 042
     Dates: start: 20160713, end: 20160713
  111. TACROLIMUS. [Suspect]
     Active Substance: TACROLIMUS
     Dosage: 7 MG, QD
     Route: 065
     Dates: start: 20160716, end: 20160718
  112. SODIUM BICARBONATE. [Concomitant]
     Active Substance: SODIUM BICARBONATE
     Dosage: 150 ML (5 %), QD
     Route: 042
     Dates: start: 20160718, end: 20160718
  113. SODIUM BICARBONATE. [Concomitant]
     Active Substance: SODIUM BICARBONATE
     Dosage: 250 ML, QD
     Route: 042
     Dates: start: 20160719, end: 20160719
  114. GLUCOSE [Concomitant]
     Active Substance: DEXTROSE
     Indication: BLOOD POTASSIUM INCREASED
     Dosage: 60 ML, QD
     Route: 042
     Dates: start: 20160704, end: 20160704
  115. ALPROSTADIL. [Concomitant]
     Active Substance: ALPROSTADIL
     Dosage: 20 UG, QD
     Route: 042
     Dates: start: 20160718, end: 20160718
  116. FUROSEMIDE. [Concomitant]
     Active Substance: FUROSEMIDE
     Indication: POLYURIA
     Dosage: 100 MG, QD
     Route: 042
     Dates: start: 20160704, end: 20160704
  117. FUROSEMIDE. [Concomitant]
     Active Substance: FUROSEMIDE
     Dosage: 60 MG, QD
     Route: 042
     Dates: start: 20160707, end: 20160707
  118. GANCICLOVIR. [Concomitant]
     Active Substance: GANCICLOVIR
     Indication: PRODUCT USED FOR UNKNOWN INDICATION
     Dosage: 50 MG, QD
     Route: 048
     Dates: start: 20160726
  119. INSULIN [Concomitant]
     Active Substance: INSULIN NOS
     Dosage: 16 IU, QD
     Route: 042
     Dates: start: 20160718, end: 20160718
  120. ISOSORBIDE MONONITRATE. [Concomitant]
     Active Substance: ISOSORBIDE MONONITRATE
     Dosage: 30 ML, QD
     Route: 042
     Dates: start: 20160712, end: 20160712
  121. HEPARIN SODIUM/LOW MOLECULE HEPARIN SODIUM [Concomitant]
     Dosage: 40 MG, QD
     Route: 058
     Dates: start: 20160707, end: 20160708
  122. NITROGLYCERIN. [Concomitant]
     Active Substance: NITROGLYCERIN
     Dosage: 20 UNK, UNK
     Route: 042
     Dates: start: 20160706, end: 20160707
  123. NITROPRUSSIDE [Concomitant]
     Active Substance: NITROPRUSSIDE
     Indication: BLOOD PRESSURE MEASUREMENT
     Dosage: 50 MG, QD
     Route: 042
     Dates: start: 20060108, end: 20060108
  124. PHOSPHOCREATINE SODIUM [Concomitant]
     Active Substance: PHOSPHOCREATINE SODIUM
     Dosage: 2000 MG, QD
     Route: 042
     Dates: start: 20160706, end: 20160722
  125. POTASSIUM CHLORIDE. [Concomitant]
     Active Substance: POTASSIUM CHLORIDE
     Dosage: 2000 MG, QID
     Route: 048
     Dates: start: 20160711, end: 20160711
  126. POTASSIUM CHLORIDE. [Concomitant]
     Active Substance: POTASSIUM CHLORIDE
     Dosage: 2000 MG, BID
     Route: 042
     Dates: start: 20160712, end: 20160712
  127. GLUTATHIONE/REDUCED GLUTATHIONE [Concomitant]
     Indication: PRODUCT USED FOR UNKNOWN INDICATION
     Dosage: 400 MG, TID
     Route: 048
     Dates: start: 20160725
  128. RIBOFLAVIN SODIUM PHOSPHATE [Concomitant]
     Indication: PRODUCT USED FOR UNKNOWN INDICATION
     Dosage: 20 MG, QD
     Route: 042
     Dates: start: 20160704, end: 20160706
  129. TORASEMIDE [Concomitant]
     Active Substance: TORSEMIDE
     Dosage: 20 UNK, UNK
     Route: 042
     Dates: start: 20160711, end: 20160711
  130. TORASEMIDE [Concomitant]
     Active Substance: TORSEMIDE
     Dosage: 40 MG, QD
     Route: 042
     Dates: start: 20160724, end: 20160724
  131. CALCIUM [Concomitant]
     Active Substance: CALCIUM
     Indication: MINERAL SUPPLEMENTATION
     Dosage: 30 ML, QD
     Route: 042
     Dates: start: 20160704, end: 20160704
  132. CALCIUM [Concomitant]
     Active Substance: CALCIUM
     Dosage: 10 ML, QD
     Route: 042
     Dates: start: 20160712, end: 20160712
  133. TACROLIMUS. [Suspect]
     Active Substance: TACROLIMUS
     Indication: IMMUNOSUPPRESSANT DRUG THERAPY
     Dosage: 6 MG, QD
     Route: 065
     Dates: start: 20160707, end: 20160711
  134. TACROLIMUS. [Suspect]
     Active Substance: TACROLIMUS
     Dosage: 3 MG, QD
     Route: 065
     Dates: start: 20160712, end: 20160715
  135. ALANYL GLUTAMINE [Concomitant]
     Active Substance: ALANYL GLUTAMINE
     Indication: NUTRITIONAL SUPPLEMENTATION
     Dosage: 2000 MG, QD
     Route: 065
     Dates: start: 20060705, end: 20160707
  136. POTASSIUM/10 % POTASSIUM [Concomitant]
     Indication: MINERAL SUPPLEMENTATION
     Dosage: 30 ML, QD
     Route: 048
     Dates: start: 20160708, end: 20160708
  137. SODIUM BICARBONATE. [Concomitant]
     Active Substance: SODIUM BICARBONATE
     Dosage: 125 ML, QD
     Route: 042
     Dates: start: 20160718, end: 20160718
  138. GLUCOSE [Concomitant]
     Active Substance: DEXTROSE
     Dosage: 60 ML, QD
     Route: 042
     Dates: start: 20160719, end: 20160719
  139. FUROSEMIDE. [Concomitant]
     Active Substance: FUROSEMIDE
     Dosage: 60 MG, QD
     Route: 042
     Dates: start: 20160721, end: 20160722
  140. INSULIN [Concomitant]
     Active Substance: INSULIN NOS
     Dosage: 14 IU, QD
     Route: 042
     Dates: start: 20160719, end: 20160719
  141. LEVAMLODIPINE BESILATE [Concomitant]
     Active Substance: LEVAMLODIPINE BESYLATE
     Indication: HYPERTENSION
     Dosage: 70 MG, QD
     Route: 042
     Dates: start: 20160707, end: 20160707
  142. MOXIFLOXACIN. [Concomitant]
     Active Substance: MOXIFLOXACIN
     Indication: PRODUCT USED FOR UNKNOWN INDICATION
     Dosage: 400 MG, QD
     Route: 042
     Dates: start: 20160704, end: 20160704
  143. TORASEMIDE [Concomitant]
     Active Substance: TORSEMIDE
     Dosage: 20 MG, QD
     Route: 042
     Dates: start: 20160710, end: 20160710
  144. TORASEMIDE [Concomitant]
     Active Substance: TORSEMIDE
     Dosage: 20 MG, BID
     Route: 042
     Dates: start: 20160712, end: 20160712

REACTIONS (13)
  - Blood glucose increased [Unknown]
  - Blood urea increased [Unknown]
  - Glomerular filtration rate decreased [Unknown]
  - Hyperkalaemia [Recovered/Resolved]
  - Bilirubin conjugated increased [Unknown]
  - Anaemia [Recovered/Resolved]
  - Incision site pain [Recovered/Resolved]
  - Neutrophil count increased [Unknown]
  - Abdominal distension [Recovered/Resolved]
  - Platelet count decreased [Unknown]
  - Myocardial infarction [Recovered/Resolved]
  - White blood cell count increased [Unknown]
  - Lymphocyte count decreased [Unknown]

NARRATIVE: CASE EVENT DATE: 20160704
